FAERS Safety Report 5858481-2 (Version None)
Quarter: 2008Q3

REPORT INFORMATION
  Report Type: 
  Country: None (occurrence: None)
  Receive Date: 20080826
  Receipt Date: 20080814
  Transmission Date: 20090109
  Serious: Yes (Other)
  Sender: FDA-Public Use
  Company Number: FR-PFIZER INC-2008051095

PATIENT
  Sex: Female
  Weight: 75 kg

DRUGS (3)
  1. CHANTIX [Suspect]
     Indication: SMOKING CESSATION THERAPY
     Dates: start: 20080103, end: 20080327
  2. TEGRETOL [Concomitant]
  3. XANAX [Concomitant]

REACTIONS (2)
  - BIPOLAR I DISORDER [None]
  - PSYCHOTIC DISORDER [None]
